FAERS Safety Report 11911358 (Version 2)
Quarter: 2016Q1

REPORT INFORMATION
  Report Type: Report from Study
  Country: US (occurrence: US)
  Receive Date: 20160112
  Receipt Date: 20160205
  Transmission Date: 20160526
  Serious: Yes (Hospitalization)
  Sender: FDA-Public Use
  Company Number: US-ELI_LILLY_AND_COMPANY-US201512002925

PATIENT
  Age: 87 Year
  Sex: Male
  Weight: 64.8 kg

DRUGS (21)
  1. LEVOTHYROXINE SODIUM. [Concomitant]
     Active Substance: LEVOTHYROXINE SODIUM
     Dosage: 25 UG, QD
     Dates: start: 20140814
  2. MIRALAX [Concomitant]
     Active Substance: POLYETHYLENE GLYCOL 3350
     Dosage: 2 DF, PRN
     Dates: start: 20150921
  3. COMBIVENT [Concomitant]
     Active Substance: ALBUTEROL SULFATE\IPRATROPIUM BROMIDE
     Dosage: 2 DF, OTHER
     Route: 055
     Dates: start: 20140814
  4. CLARITIN [Concomitant]
     Active Substance: LORATADINE
     Dosage: 10 MG, BID
     Dates: start: 20151214
  5. ACETAMINOPHEN AND CODEINE [Concomitant]
     Active Substance: ACETAMINOPHEN\CODEINE PHOSPHATE
     Dosage: 1 DF, OTHER
     Dates: start: 20140814
  6. DULOXETINE HCL [Concomitant]
     Active Substance: DULOXETINE HYDROCHLORIDE
     Dosage: 30 MG, QD
     Dates: start: 20151214
  7. TRAVATAN [Concomitant]
     Active Substance: TRAVOPROST
     Dosage: 1 GTT, EACH EVENING
     Dates: start: 20140814
  8. MIRTAZAPINE. [Concomitant]
     Active Substance: MIRTAZAPINE
     Dosage: 30 MG, EACH EVENING
     Dates: start: 20140814
  9. AZOPT [Concomitant]
     Active Substance: BRINZOLAMIDE
     Dosage: 1 GTT, BID
     Dates: start: 20140814
  10. HYDROXYZINE HCL [Concomitant]
     Active Substance: HYDROXYZINE HYDROCHLORIDE
     Dosage: 25 MG, PRN
     Dates: start: 20151214
  11. FORTEO [Suspect]
     Active Substance: TERIPARATIDE
     Dosage: 20 UG, QD
     Route: 058
     Dates: start: 20150729, end: 201508
  12. CLOTRIMAZOLE. [Concomitant]
     Active Substance: CLOTRIMAZOLE
     Dosage: UNK, BID
     Dates: start: 20151214
  13. JALYN [Concomitant]
     Active Substance: DUTASTERIDE\TAMSULOSIN HYDROCHLORIDE
     Dosage: 1 DF, QD
     Dates: start: 20140814
  14. FORTEO [Suspect]
     Active Substance: TERIPARATIDE
     Indication: OSTEOPOROSIS
     Dosage: 20 UG, QD
     Route: 058
     Dates: start: 20140814, end: 20150611
  15. OXYGEN. [Concomitant]
     Active Substance: OXYGEN
     Dosage: UNK, QD
     Dates: start: 20151214
  16. CLOBETASOL PROPIONATE. [Concomitant]
     Active Substance: CLOBETASOL PROPIONATE
     Dosage: UNK, QD
     Dates: start: 20151214
  17. VITAMIN D3 [Concomitant]
     Active Substance: CHOLECALCIFEROL
     Dosage: 2000 IU, QD
     Dates: start: 20150323
  18. PRADAXA [Concomitant]
     Active Substance: DABIGATRAN ETEXILATE MESYLATE
     Dosage: 75 MG, BID
     Dates: start: 20150323
  19. OMEPRAZOLE. [Concomitant]
     Active Substance: OMEPRAZOLE
     Dosage: 40 MG, QD
     Dates: start: 20150323
  20. COD-LIVER OIL [Concomitant]
     Active Substance: FISH OIL
     Dosage: UNK, BID
     Dates: start: 20141013
  21. NITROSTAT [Concomitant]
     Active Substance: NITROGLYCERIN
     Indication: CHEST PAIN
     Dosage: 0.4 MG, UNK
     Dates: start: 20140814

REACTIONS (1)
  - Drug eruption [Recovering/Resolving]

NARRATIVE: CASE EVENT DATE: 20150518
